FAERS Safety Report 8114710-6 (Version None)
Quarter: 2012Q1

REPORT INFORMATION
  Report Type: 
  Country: None (occurrence: None)
  Receive Date: 20120202
  Receipt Date: 20120202
  Transmission Date: 20120608
  Serious: Yes (Hospitalization)
  Sender: FDA-Public Use
  Company Number: None

PATIENT
  Age: 51 Year
  Sex: Male
  Weight: 97.5 kg

DRUGS (1)
  1. DIPHENHYDRAMINE HCL [Suspect]
     Indication: PRURITUS
     Dosage: MG ONCE PO
     Route: 048
     Dates: start: 20111128, end: 20111129

REACTIONS (2)
  - CONFUSIONAL STATE [None]
  - URINARY RETENTION [None]
